FAERS Safety Report 4595100-X (Version None)
Quarter: 2005Q1

REPORT INFORMATION
  Report Type: 
  Country: None (occurrence: None)
  Receive Date: 20050223
  Receipt Date: 20050210
  Transmission Date: 20050727
  Serious: Yes (Death, Life-Threatening)
  Sender: FDA-Public Use
  Company Number: FABR-11011

PATIENT
  Age: 61 Year
  Sex: Female
  Weight: 67.6 kg

DRUGS (4)
  1. FABRAZYME [Suspect]
     Indication: FABRY'S DISEASE
     Dosage: 70 MG Q2WKS IV
     Route: 042
     Dates: start: 20040422, end: 20040716
  2. ATIVAN [Concomitant]
  3. BENADRYL [Concomitant]
  4. HALDOL [Concomitant]

REACTIONS (4)
  - HEPATIC FAILURE [None]
  - PROCEDURAL COMPLICATION [None]
  - RENAL FAILURE [None]
  - TREATMENT NONCOMPLIANCE [None]
